FAERS Safety Report 19387139 (Version 1)
Quarter: 2021Q2

REPORT INFORMATION
  Report Type: Report from Study
  Country: GB (occurrence: GB)
  Receive Date: 20210608
  Receipt Date: 20210608
  Transmission Date: 20210717
  Serious: Yes (Hospitalization)
  Sender: FDA-Public Use
  Company Number: GB-MYLANLABS-2021M1032442

PATIENT
  Age: 50 Week
  Sex: Male

DRUGS (16)
  1. WARFARIN [Interacting]
     Active Substance: WARFARIN
     Dosage: 0.25 MILLIGRAM/KILOGRAM, QD MAXIMUM DOSE
     Route: 065
  2. WARFARIN [Interacting]
     Active Substance: WARFARIN
     Dosage: 0.252 MILLIGRAM/KILOGRAM, QD
     Route: 065
  3. PHENOXYMETHYLPENICILLIN [Interacting]
     Active Substance: PENICILLIN V
     Indication: ANTIBIOTIC THERAPY
     Route: 065
  4. ENOXAPARIN SODIUM. [Concomitant]
     Active Substance: ENOXAPARIN SODIUM
     Dosage: 7.44 MILLIGRAM/KILOGRAM, QD
     Route: 058
  5. IRON SUCROSE [Concomitant]
     Active Substance: IRON SUCROSE
     Indication: PRODUCT USED FOR UNKNOWN INDICATION
     Route: 042
  6. WARFARIN [Suspect]
     Active Substance: WARFARIN
     Indication: THROMBOSIS PROPHYLAXIS
     Dosage: 0.18 MILLIGRAM/KILOGRAM, QD
     Route: 065
  7. DARBEPOETIN ALFA [Concomitant]
     Active Substance: DARBEPOETIN ALFA
     Indication: PRODUCT USED FOR UNKNOWN INDICATION
     Route: 042
  8. RANITIDINE. [Concomitant]
     Active Substance: RANITIDINE
     Indication: PRODUCT USED FOR UNKNOWN INDICATION
     Route: 065
  9. WARFARIN [Interacting]
     Active Substance: WARFARIN
     Dosage: 0.293 MILLIGRAM/KILOGRAM, QD
     Route: 065
  10. ENOXAPARIN SODIUM. [Concomitant]
     Active Substance: ENOXAPARIN SODIUM
     Indication: THROMBOSIS PROPHYLAXIS
     Dosage: 1.9 MILLIGRAM/KILOGRAM, QD
     Route: 058
  11. FUROSEMIDE. [Concomitant]
     Active Substance: FUROSEMIDE
     Indication: PRODUCT USED FOR UNKNOWN INDICATION
     Route: 042
  12. CHOLECALCIFEROL [Concomitant]
     Active Substance: CHOLECALCIFEROL
     Indication: PRODUCT USED FOR UNKNOWN INDICATION
     Route: 065
  13. LEVOTHYROXINE. [Concomitant]
     Active Substance: LEVOTHYROXINE
     Indication: PRODUCT USED FOR UNKNOWN INDICATION
     Route: 065
  14. ENALAPRIL [Concomitant]
     Active Substance: ENALAPRIL
     Indication: PRODUCT USED FOR UNKNOWN INDICATION
     Route: 065
  15. ESOMEPRAZOLE. [Concomitant]
     Active Substance: ESOMEPRAZOLE MAGNESIUM
     Indication: PRODUCT USED FOR UNKNOWN INDICATION
     Dosage: STARTED AFTER FIRST BLEEDING EVENT
     Route: 065
  16. SODIUM CHLORIDE. [Concomitant]
     Active Substance: SODIUM CHLORIDE
     Indication: PRODUCT USED FOR UNKNOWN INDICATION
     Dosage: 1MMOL/ML
     Route: 065

REACTIONS (4)
  - Haemorrhage [Unknown]
  - Drug interaction [Unknown]
  - Anaemia [Recovered/Resolved]
  - Anticoagulation drug level above therapeutic [Unknown]
